FAERS Safety Report 19405131 (Version 1)
Quarter: 2021Q2

REPORT INFORMATION
  Report Type: Spontaneous
  Country: US (occurrence: US)
  Receive Date: 20210611
  Receipt Date: 20210611
  Transmission Date: 20210717
  Serious: Yes (Hospitalization, Other)
  Sender: FDA-Public Use
  Company Number: US-SA-2021SA194454

PATIENT
  Age: 66 Year
  Sex: Female

DRUGS (1)
  1. DUPIXENT [Suspect]
     Active Substance: DUPILUMAB
     Indication: DERMATITIS ATOPIC
     Dosage: 300 MG, QOW
     Route: 058
     Dates: start: 20210325

REACTIONS (5)
  - Cerebrovascular accident [Unknown]
  - Haemorrhage intracranial [Unknown]
  - Product dose omission issue [Unknown]
  - COVID-19 [Unknown]
  - Embolism [Unknown]

NARRATIVE: CASE EVENT DATE: 202105
